FAERS Safety Report 9114093 (Version 1)
Quarter: 2013Q1

REPORT INFORMATION
  Report Type: Spontaneous
  Country: US (occurrence: US)
  Receive Date: 20130129
  Receipt Date: 20130129
  Transmission Date: 20140127
  Serious: No
  Sender: FDA-Public Use
  Company Number: US-PFIZER INC-2013034174

PATIENT
  Age: 61 Year
  Sex: Female
  Weight: 51.7 kg

DRUGS (1)
  1. MECLOZINE HCL [Suspect]
     Indication: PROPHYLAXIS AGAINST MOTION SICKNESS
     Dosage: UNK

REACTIONS (1)
  - Drug ineffective [Unknown]
